FAERS Safety Report 7394414-8 (Version None)
Quarter: 2011Q2

REPORT INFORMATION
  Report Type: 
  Country: None (occurrence: None)
  Receive Date: 20110405
  Receipt Date: 20110322
  Transmission Date: 20111010
  Serious: No
  Sender: FDA-Public Use
  Company Number: PHHY2011BR25549

PATIENT
  Sex: Female
  Weight: 69 kg

DRUGS (4)
  1. AMLODIPINE BESILATE [Concomitant]
     Indication: HYPERTENSION
     Dosage: 1 DF, QD
     Route: 048
     Dates: start: 20060101
  2. METFORMIN [Concomitant]
     Dosage: 1 DF, QD
     Route: 048
     Dates: start: 19940101
  3. RIVOTRIL [Concomitant]
     Indication: ANXIETY DISORDER
     Dosage: 4 DRP, UNK
     Route: 048
     Dates: start: 20110306
  4. DICLOFENAC SODIUM [Suspect]
     Indication: INTERVERTEBRAL DISC PROTRUSION
     Dosage: 1 DF, BID
     Route: 048
     Dates: start: 20110313

REACTIONS (3)
  - MUSCLE SPASMS [None]
  - PARAESTHESIA [None]
  - DRUG INEFFECTIVE [None]
